FAERS Safety Report 23972670 (Version 1)
Quarter: 2024Q2

REPORT INFORMATION
  Report Type: Spontaneous
  Country: IT (occurrence: IT)
  Receive Date: 20240613
  Receipt Date: 20240613
  Transmission Date: 20240716
  Serious: Yes (Hospitalization)
  Sender: FDA-Public Use
  Company Number: None

PATIENT
  Age: 70 Year
  Sex: Male

DRUGS (5)
  1. OXALIPLATIN [Suspect]
     Active Substance: OXALIPLATIN
     Indication: Adenocarcinoma of colon
     Dosage: 50 MG/10 ML
     Route: 042
     Dates: start: 20240424, end: 20240424
  2. OXALIPLATIN [Suspect]
     Active Substance: OXALIPLATIN
     Indication: Adenocarcinoma of colon
     Dosage: 100 MG/ 20 ML
     Route: 042
     Dates: start: 20240424, end: 20240424
  3. CAPECITABINE [Concomitant]
     Active Substance: CAPECITABINE
     Indication: Adenocarcinoma of colon
     Dosage: 4 TABLETS OF 500 MG AFTER BREAKFAST AND 3 TABLETS OF 500 MG AFTER DINNER
     Route: 048
     Dates: start: 20240425, end: 20240508
  4. ONDANSETRON [Concomitant]
     Active Substance: ONDANSETRON
     Indication: Product used for unknown indication
     Dosage: 8 MG IN 100 ML OF SALINE SOLUTION
     Route: 042
     Dates: start: 20240424, end: 20240424
  5. DEXAMETHASONE [Concomitant]
     Active Substance: DEXAMETHASONE
     Indication: Product used for unknown indication
     Dosage: 16 MG IN 100 ML OF SALINE SOLUTION
     Route: 042
     Dates: start: 20240424, end: 20240424

REACTIONS (2)
  - Febrile neutropenia [Not Recovered/Not Resolved]
  - Megacolon [Not Recovered/Not Resolved]

NARRATIVE: CASE EVENT DATE: 20240510
